FAERS Safety Report 9061815 (Version 2)
Quarter: 2013Q2

REPORT INFORMATION
  Report Type: Spontaneous
  Country: US (occurrence: US)
  Receive Date: 20130128
  Receipt Date: 20130619
  Transmission Date: 20140414
  Serious: Yes (Life-Threatening, Hospitalization)
  Sender: FDA-Public Use
  Company Number: US-BAYER-2013-009542

PATIENT
  Age: 26 Year
  Sex: Female
  Weight: 111.11 kg

DRUGS (6)
  1. YAZ [Suspect]
     Dosage: UNK
     Dates: start: 20100109, end: 20100505
  2. YAZ [Suspect]
     Dosage: UNK
     Dates: start: 20100730, end: 20100924
  3. YAZ [Suspect]
     Dosage: UNK
     Dates: start: 20120125, end: 20120214
  4. BEYAZ [Suspect]
     Indication: CONTRACEPTION
     Dosage: UNK
     Dates: start: 20120125, end: 20120214
  5. GIANVI [Suspect]
     Indication: CONTRACEPTION
     Dosage: UNK
     Dates: start: 201006, end: 201007
  6. HCG [Concomitant]
     Indication: CONTRACEPTION
     Dosage: 6 DROPS THREE TIMES DAILY
     Route: 048
     Dates: start: 20120214

REACTIONS (8)
  - Deep vein thrombosis [Recovering/Resolving]
  - Thrombophlebitis superficial [Recovered/Resolved]
  - Pain [Recovering/Resolving]
  - Anxiety [None]
  - Anhedonia [None]
  - Fear of disease [None]
  - Pain in extremity [Recovering/Resolving]
  - Oedema peripheral [Recovering/Resolving]
